FAERS Safety Report 24137050 (Version 5)
Quarter: 2025Q1

REPORT INFORMATION
  Report Type: Spontaneous
  Country: US (occurrence: US)
  Receive Date: 20240725
  Receipt Date: 20250123
  Transmission Date: 20250408
  Serious: No
  Sender: PFIZER
  Company Number: US-PFIZER INC-202400219064

PATIENT
  Age: 9 Year
  Sex: Male
  Weight: 24.95 kg

DRUGS (1)
  1. GENOTROPIN [Suspect]
     Active Substance: SOMATROPIN
     Indication: Short stature
     Dosage: 1 MG, DAILY

REACTIONS (4)
  - Poor quality product administered [Unknown]
  - Drug dose omission by device [Unknown]
  - Device breakage [Unknown]
  - Device use error [Unknown]
